FAERS Safety Report 8691984 (Version 11)
Quarter: 2013Q3

REPORT INFORMATION
  Report Type: Report from Study
  Country: JP (occurrence: JP)
  Receive Date: 20120730
  Receipt Date: 20130716
  Transmission Date: 20140515
  Serious: Yes (Hospitalization, Other)
  Sender: FDA-Public Use
  Company Number: JP-009507513-1207JPN009379

PATIENT
  Age: 50 Year
  Sex: Female
  Weight: 57 kg

DRUGS (23)
  1. PEGINTRON [Suspect]
     Indication: CHRONIC HEPATITIS C
     Dosage: 1.4 MICROGRAM PER KILOGRAM, QW
     Route: 058
     Dates: start: 20120530, end: 20120704
  2. REBETOL [Suspect]
     Indication: CHRONIC HEPATITIS C
     Dosage: 400 MG, QD
     Route: 048
     Dates: start: 20120530, end: 20120612
  3. REBETOL [Suspect]
     Dosage: 200 MG, QD
     Route: 048
     Dates: start: 20120613, end: 20120707
  4. TELAVIC [Suspect]
     Indication: CHRONIC HEPATITIS C
     Dosage: 1500 MG, QD
     Route: 048
     Dates: start: 20120530, end: 20120707
  5. ZYLORIC [Suspect]
     Indication: ADVERSE EVENT
     Dosage: 200 MG, QD, FORMULATION: POR
     Route: 048
     Dates: start: 20120602, end: 20120808
  6. PREDONINE [Suspect]
     Indication: ADVERSE EVENT
     Dosage: 20 MG, QD, FORMULATION: POR
     Route: 048
     Dates: start: 20120702, end: 20120703
  7. PREDONINE [Suspect]
     Dosage: 10 MG, QD, FORMULATION: POR
     Route: 048
     Dates: start: 20120704, end: 20120705
  8. PREDONINE [Suspect]
     Dosage: 20 MG, QD, FORMULATION: POR
     Route: 048
     Dates: start: 20120706, end: 20120707
  9. PREDONINE [Suspect]
     Dosage: 60 MG, QD, FORMULATION: POR
     Route: 048
     Dates: start: 20120708, end: 20120709
  10. PREDONINE [Suspect]
     Dosage: 50 MG, QD, FORMULATION: POR
     Route: 048
     Dates: start: 20120710, end: 20120719
  11. PREDONINE [Suspect]
     Dosage: 40 MG, QD, FORMULATION: POR
     Route: 048
     Dates: start: 20120720, end: 20120727
  12. PREDONINE [Suspect]
     Dosage: 60 MG, QD, FORMULATION: POR
     Route: 048
     Dates: start: 20120728, end: 20120730
  13. PREDONINE [Suspect]
     Dosage: 60 MG, QD, FORMULATION: POR
     Route: 048
     Dates: start: 20120803, end: 20120805
  14. PREDONINE [Suspect]
     Dosage: 50 MG, QD, FORMULATION: POR
     Route: 048
     Dates: start: 20120825, end: 20120827
  15. PREDONINE [Suspect]
     Dosage: 40 MG, QD, FORMULATION: POR
     Route: 048
     Dates: start: 20120828, end: 20120902
  16. PREDONINE [Suspect]
     Dosage: 30 MG, QD, FORMULATION: POR
     Route: 048
     Dates: start: 20120903
  17. GASTER D [Concomitant]
     Indication: PROPHYLAXIS
     Dosage: 40 MG, QD,FORMULATION:POR
     Route: 048
     Dates: start: 20120702, end: 20120707
  18. DERMOVATE [Concomitant]
     Dosage: DAILY DOSE UNKNOWN, PROPERLY/DAY, AS NEEDED, FORMULATION : OIT
     Route: 061
     Dates: start: 20120604
  19. ALLEGRA [Concomitant]
     Dosage: 120 MG, QD,
     Route: 048
     Dates: start: 20120607
  20. KINDAVATE [Concomitant]
     Dosage: DAILY DOSE UNKNOWN, FORMULATION : OIT
     Route: 061
     Dates: start: 20120608
  21. ANHIBA [Concomitant]
     Dosage: 200 MG, QD
     Route: 054
     Dates: start: 20120627
  22. AZUNOL (SODIUM GUALENATE) [Concomitant]
     Dosage: PROPERLY/DAY, AS NEEDED, DAILY DOSE UNKNOWN, FORMULATION : MWH
     Route: 049
     Dates: start: 20120720
  23. CRAVIT [Concomitant]
     Dosage: DAILY DOSE UNKNOWN, PROPERLY/DAY
     Route: 031
     Dates: start: 20120725

REACTIONS (2)
  - Rash [Recovering/Resolving]
  - Toxic epidermal necrolysis [Recovering/Resolving]
